FAERS Safety Report 5096654-X (Version None)
Quarter: 2006Q3

REPORT INFORMATION
  Report Type: 
  Country: None (occurrence: None)
  Receive Date: 20060830
  Receipt Date: 20060822
  Transmission Date: 20061208
  Serious: Yes (Hospitalization, Other)
  Sender: FDA-Public Use
  Company Number: HQWYE802322AUG06

PATIENT
  Age: 35 Year
  Sex: Female

DRUGS (2)
  1. VENLAFAXINE HCL EXTENDED-RELEASE [Suspect]
     Indication: DEPRESSION
     Dosage: TEN 75 MG CAPSULES (OVERDOSE AMOUNT 750 MG)
     Route: 048
     Dates: start: 20060821, end: 20060821
  2. ALCOHOL (ETHANOL, ) [Suspect]
     Dates: start: 20060821, end: 20060821

REACTIONS (4)
  - DRUG TOXICITY [None]
  - INTENTIONAL OVERDOSE [None]
  - NAUSEA [None]
  - SUICIDE ATTEMPT [None]
